FAERS Safety Report 14193095 (Version 1)
Quarter: 2017Q4

REPORT INFORMATION
  Report Type: Spontaneous
  Country: IN (occurrence: IN)
  Receive Date: 20171116
  Receipt Date: 20171116
  Transmission Date: 20180321
  Serious: No
  Sender: FDA-Public Use
  Company Number: IN-LUPIN PHARMACEUTICALS INC.-2017-03301

PATIENT
  Age: 33 Year
  Sex: Female

DRUGS (2)
  1. DROSPIRENONE AND ETHINYL ESTRADIOL [Suspect]
     Active Substance: DROSPIRENONE\ETHINYL ESTRADIOL
     Dosage: 1 DF, UNK
     Route: 048
     Dates: start: 20170619
  2. THYROX [Concomitant]
     Indication: HYPOTHYROIDISM
     Dosage: 1 DF, OD
     Route: 048

REACTIONS (3)
  - Metrorrhagia [Recovered/Resolved]
  - Inappropriate schedule of drug administration [Unknown]
  - Nausea [Recovered/Resolved]

NARRATIVE: CASE EVENT DATE: 20170619
